FAERS Safety Report 5271181-5 (Version None)
Quarter: 2007Q1

REPORT INFORMATION
  Report Type: 
  Country: None (occurrence: None)
  Receive Date: 20070315
  Receipt Date: 20070228
  Transmission Date: 20070707
  Serious: Yes (Hospitalization)
  Sender: FDA-Public Use
  Company Number: 235864

PATIENT
  Age: 58 Year
  Sex: Female
  Weight: 97 kg

DRUGS (8)
  1. BEVACIZUMAB OR PLACEBO (BEVACIZUMAB) PWDR + SOLVENT, INFUSION SOLN, 10 [Suspect]
     Indication: BREAST CANCER METASTATIC
     Dosage: 15 MG/KG, Q3W, INTRAVENOUS
     Route: 042
     Dates: start: 20061222
  2. DOCETAXEL (DOCETAXEL) [Suspect]
     Indication: BREAST CANCER METASTATIC
     Dosage: 100 MG/M2, Q3W, INTRAVENOUS
     Route: 042
     Dates: start: 20061222
  3. BROTIZOLAM (BROTIZOLAM) [Concomitant]
  4. GLUCOBAY [Concomitant]
  5. HYDROCHLOROTHIAZIDE [Concomitant]
  6. LISINOPRIL [Concomitant]
  7. PREDNISOLONE [Concomitant]
  8. SODIUM PICOSULFATE (SODIUM PICOSULFATE) [Concomitant]

REACTIONS (1)
  - ANAL FISSURE [None]
